FAERS Safety Report 5621618-4 (Version None)
Quarter: 2008Q1

REPORT INFORMATION
  Report Type: 
  Country: None (occurrence: None)
  Receive Date: 20080211
  Receipt Date: 20080206
  Transmission Date: 20080703
  Serious: Yes (Life-Threatening, Other)
  Sender: FDA-Public Use
  Company Number: PHNU2008DE00857

PATIENT
  Age: 70 Year
  Sex: Female

DRUGS (2)
  1. BETA BLOCKING AGENTS [Concomitant]
  2. RASILEZ [Suspect]
     Indication: HYPERTENSION
     Dosage: 150 MG, QD
     Route: 048
     Dates: start: 20080101

REACTIONS (6)
  - ACUTE MYOCARDIAL INFARCTION [None]
  - CEREBROVASCULAR ACCIDENT [None]
  - INTESTINAL RESECTION [None]
  - MESENTERIC ARTERY EMBOLISM [None]
  - PERIPHERAL EMBOLISM [None]
  - THROMBOSIS [None]
